FAERS Safety Report 17915091 (Version 2)
Quarter: 2020Q4

REPORT INFORMATION
  Report Type: Spontaneous
  Country: JP (occurrence: JP)
  Receive Date: 20200618
  Receipt Date: 20201215
  Transmission Date: 20210113
  Serious: Yes (Hospitalization, Other)
  Sender: FDA-Public Use
  Company Number: JP-AMGEN-JPNSP2020097198

PATIENT

DRUGS (2)
  1. ROMIPLATE [Suspect]
     Active Substance: ROMIPLOSTIM
     Indication: APLASTIC ANAEMIA
     Dosage: 10 MICROGRAM/KILOGRAM
     Route: 058
     Dates: start: 202005
  2. ROMIPLATE [Suspect]
     Active Substance: ROMIPLOSTIM
     Dosage: 20 MICROGRAM/KILOGRAM
     Route: 058
     Dates: end: 202006

REACTIONS (3)
  - Inappropriate schedule of product administration [Unknown]
  - Myelodysplastic syndrome [Unknown]
  - Leukaemia [Unknown]

NARRATIVE: CASE EVENT DATE: 2020
